FAERS Safety Report 18790378 (Version 1)
Quarter: 2021Q1

REPORT INFORMATION
  Report Type: Spontaneous
  Country: IN (occurrence: IN)
  Receive Date: 20210126
  Receipt Date: 20210126
  Transmission Date: 20210419
  Serious: Yes (Other)
  Sender: FDA-Public Use
  Company Number: IN-CHEPLA-C20210369

PATIENT
  Age: 43 Year
  Sex: Male

DRUGS (4)
  1. VALACYCLOVIR [Suspect]
     Active Substance: VALACYCLOVIR HYDROCHLORIDE
  2. GANCICLOVIR. [Suspect]
     Active Substance: GANCICLOVIR
     Indication: NECROTISING HERPETIC RETINOPATHY
     Route: 050
  3. GANCICLOVIR. [Suspect]
     Active Substance: GANCICLOVIR
     Indication: NECROTISING HERPETIC RETINOPATHY
     Dosage: 2 MG/0.1 ML, TWICE IN A WEEK
     Route: 050
  4. ACYCLOVIR. [Suspect]
     Active Substance: ACYCLOVIR
     Indication: NECROTISING HERPETIC RETINOPATHY
     Dosage: 12.5 MG/KG, TID, HIGH DOSES

REACTIONS (3)
  - Product use in unapproved indication [Unknown]
  - Rhegmatogenous retinal detachment [Unknown]
  - Macular fibrosis [Unknown]
